FAERS Safety Report 9802002 (Version 2)
Quarter: 2014Q3

REPORT INFORMATION
  Report Type: Spontaneous
  Country: US (occurrence: US)
  Receive Date: 20140107
  Receipt Date: 20140811
  Transmission Date: 20150326
  Serious: No
  Sender: FDA-Public Use
  Company Number: US-009507513-1401USA001978

PATIENT
  Sex: Female
  Weight: 169.6 kg

DRUGS (1)
  1. NUVARING [Suspect]
     Active Substance: ETHINYL ESTRADIOL\ETONOGESTREL
     Indication: PRODUCT USED FOR UNKNOWN INDICATION
     Dosage: UNK
     Route: 067
     Dates: end: 20120516

REACTIONS (8)
  - Muscle spasms [Unknown]
  - Foot fracture [Unknown]
  - Menstruation irregular [Unknown]
  - Deep vein thrombosis [Recovered/Resolved]
  - Vaginal haemorrhage [Unknown]
  - Nausea [Unknown]
  - Vitamin B12 deficiency [Unknown]
  - Haemorrhagic disorder [Unknown]

NARRATIVE: CASE EVENT DATE: 2012
